FAERS Safety Report 4385880-0 (Version None)
Quarter: 2004Q2

REPORT INFORMATION
  Report Type: 
  Country: None (occurrence: None)
  Receive Date: 20040621
  Receipt Date: 20040617
  Transmission Date: 20050107
  Serious: Yes (Death)
  Sender: FDA-Public Use
  Company Number: 402725410/PHRM2004 FR02002

PATIENT
  Age: 76 Year
  Sex: Male
  Weight: 80 kg

DRUGS (4)
  1. AK-FLUOR, 10% , AKORN [Suspect]
     Indication: ANGIOGRAM RETINA
     Dosage: 5ML.X1.IV
     Route: 042
     Dates: start: 20040604
  2. AVLOCARDLY [Concomitant]
  3. SREDITE, GLAXO, (SALMETEROL XINAFOATE [Concomitant]
  4. AMAREL (GLIMEPIRIDE),  TABLET [Concomitant]

REACTIONS (14)
  - ANAPHYLACTIC SHOCK [None]
  - BLOOD PRESSURE IMMEASURABLE [None]
  - BLOOD PRESSURE INCREASED [None]
  - COMA [None]
  - CYANOSIS [None]
  - DYSPNOEA [None]
  - FOAMING AT MOUTH [None]
  - INTRACARDIAC THROMBUS [None]
  - LOSS OF CONSCIOUSNESS [None]
  - MALAISE [None]
  - OXYGEN SATURATION DECREASED [None]
  - RESPIRATORY DISORDER [None]
  - SALIVARY HYPERSECRETION [None]
  - VASODILATATION [None]
